FAERS Safety Report 14607562 (Version 1)
Quarter: 2018Q1

REPORT INFORMATION
  Report Type: Spontaneous
  Country: ES (occurrence: ES)
  Receive Date: 20180307
  Receipt Date: 20180307
  Transmission Date: 20180509
  Serious: Yes (Death, Hospitalization)
  Sender: FDA-Public Use
  Company Number: PHHY2018ES035726

PATIENT
  Age: 72 Year
  Sex: Female

DRUGS (3)
  1. ALPRAZOLAM. [Suspect]
     Active Substance: ALPRAZOLAM
     Indication: PRODUCT USED FOR UNKNOWN INDICATION
     Dosage: 1 MG, 1/2-1/2-1 DOSIS UNIDAD FRECUENCIA: 1 MG-MILIGRAMOS UNIDAD DE FRECUENCIA: 1 DIA
     Route: 048
     Dates: start: 20140401
  2. LUDIOMIL [Suspect]
     Active Substance: MAPROTILINE HYDROCHLORIDE
     Indication: DEPRESSION
     Dosage: 18.75 MG, (1/2-0-1/2) DOSIS UNIDAD FRECUENCIA: 37.5 MG-MILIGRAMOS DOSIS POR TOMA: 18.75 MG-MILIGRAMO
     Route: 048
     Dates: start: 20140401
  3. BRINTELLIX [Suspect]
     Active Substance: VORTIOXETINE HYDROBROMIDE
     Indication: DEPRESSION
     Dosage: 5 MG, 1 VEZ AL DIA DOSIS UNIDAD FRECUENCIA: 5 MG-MILIGRAMOS DOSIS POR TOMA: 5 MG-MILIGRAMOS
     Route: 048
     Dates: start: 20160310, end: 20160402

REACTIONS (4)
  - Cerebrovascular accident [Fatal]
  - Hyponatraemia [Fatal]
  - Aspiration [Fatal]
  - Polydipsia [Fatal]

NARRATIVE: CASE EVENT DATE: 20160401
